FAERS Safety Report 6460271-7 (Version None)
Quarter: 2009Q4

REPORT INFORMATION
  Report Type: 
  Country: None (occurrence: None)
  Receive Date: 20091130
  Receipt Date: 20091118
  Transmission Date: 20100525
  Serious: Yes (Other)
  Sender: FDA-Public Use
  Company Number: PHEH2009US13880

PATIENT
  Sex: Female

DRUGS (2)
  1. GLEEVEC [Suspect]
     Dosage: 200 MG
     Dates: start: 20090311
  2. GLEEVEC [Suspect]
     Dosage: 400 MG X 1 DAY ALTERNATING

REACTIONS (2)
  - ABORTION INDUCED [None]
  - DRUG EXPOSURE DURING PREGNANCY [None]
